FAERS Safety Report 5944103-9 (Version None)
Quarter: 2008Q4

REPORT INFORMATION
  Report Type: 
  Country: None (occurrence: None)
  Receive Date: 20081021
  Receipt Date: 20080403
  Transmission Date: 20090506
  Serious: Yes (Other)
  Sender: FDA-Public Use
  Company Number: US-WYE-H03432808

PATIENT
  Age: 52 Year
  Sex: Female
  Weight: 76.27 kg

DRUGS (2)
  1. PREMARIN [Suspect]
     Indication: HOT FLUSH
     Dosage: 0.625 MG 1X PER 1 DAY, ORAL
     Route: 048
     Dates: start: 20060101, end: 20070215
  2. MULTIVITAMINS (ASCORBIC ACID/ERGOCALCIFEROL/FOLIC ACID/NICOTINAMIDE/PA [Concomitant]

REACTIONS (12)
  - ABDOMINAL DISTENSION [None]
  - BREAST DISCOMFORT [None]
  - DECREASED APPETITE [None]
  - DYSPHONIA [None]
  - INFREQUENT BOWEL MOVEMENTS [None]
  - INSOMNIA [None]
  - MENTAL STATUS CHANGES [None]
  - MYALGIA [None]
  - RASH [None]
  - URINE OUTPUT DECREASED [None]
  - VISION BLURRED [None]
  - VISUAL IMPAIRMENT [None]
